FAERS Safety Report 8006573-4 (Version None)
Quarter: 2011Q4

REPORT INFORMATION
  Report Type: 
  Country: None (occurrence: None)
  Receive Date: 20111227
  Receipt Date: 20111217
  Transmission Date: 20120403
  Serious: Yes (Hospitalization, Other)
  Sender: FDA-Public Use
  Company Number: AU-PAR PHARMACEUTICAL, INC-2011SCPR003555

PATIENT

DRUGS (3)
  1. DEXAMETHASONE [Suspect]
     Indication: METASTASES TO CENTRAL NERVOUS SYSTEM
     Dosage: 16MG DAILY
     Route: 065
  2. DEXAMETHASONE [Suspect]
     Dosage: 4MG DAILY
     Route: 065
  3. RADIOTHERAPY [Concomitant]
     Indication: METASTASES TO CENTRAL NERVOUS SYSTEM

REACTIONS (3)
  - PULMONARY PNEUMATOCELE [None]
  - LEGIONELLA INFECTION [None]
  - IMMUNOSUPPRESSION [None]
